FAERS Safety Report 24665380 (Version 1)
Quarter: 2024Q4

REPORT INFORMATION
  Report Type: Spontaneous
  Country: FR (occurrence: FR)
  Receive Date: 20241126
  Receipt Date: 20241126
  Transmission Date: 20250114
  Serious: Yes (Hospitalization)
  Sender: MYLAN
  Company Number: None

PATIENT
  Age: 60 Year
  Sex: Female
  Weight: 53 kg

DRUGS (3)
  1. DILTIAZEM [Suspect]
     Active Substance: DILTIAZEM
     Indication: Myocardial ischaemia
     Dosage: UNK
     Route: 048
     Dates: start: 20230331, end: 20230405
  2. DILTIAZEM HYDROCHLORIDE [Suspect]
     Active Substance: DILTIAZEM HYDROCHLORIDE
     Indication: Myocardial ischaemia
     Dosage: 1 DOSAGE FORM, BID (EXTENDED-RELEASE COATED TABLET)
     Route: 048
     Dates: start: 20230405, end: 20230409
  3. SOTALOL [Concomitant]
     Active Substance: SOTALOL
     Indication: Myocardial ischaemia
     Dosage: 1.5 DOSAGE FORM, BID (80-0-40)
     Route: 048
     Dates: start: 20230201, end: 20230331

REACTIONS (1)
  - Drug reaction with eosinophilia and systemic symptoms [Recovered/Resolved]

NARRATIVE: CASE EVENT DATE: 20230407
